FAERS Safety Report 18034146 (Version 2)
Quarter: 2020Q3

REPORT INFORMATION
  Report Type: Spontaneous
  Country: NL (occurrence: FR)
  Receive Date: 20200716
  Receipt Date: 20200730
  Transmission Date: 20201103
  Serious: Yes (Death, Hospitalization)
  Sender: FDA-Public Use
  Company Number: FR-FRESENIUS KABI-FK202006977

PATIENT
  Age: 57 Year
  Sex: Male

DRUGS (3)
  1. CEFTAZIDIME PENTAHYDRATE [Suspect]
     Active Substance: CEFTAZIDIME
     Indication: SEPSIS
     Route: 041
     Dates: start: 20200418, end: 20200605
  2. LEVOFLOXACIN KABI (NOT SPECIFIED) [Suspect]
     Active Substance: LEVOFLOXACIN
     Indication: INFECTION
     Dosage: 500 MG 2/J ? 250 MG 1/J
     Route: 041
     Dates: start: 20200412, end: 20200604
  3. CEFTAZIDIME PENTAHYDRATE/AVIBACTAM SODIUM [Suspect]
     Active Substance: AVIBACTAM SODIUM\CEFTAZIDIME
     Indication: SEPSIS
     Route: 041
     Dates: start: 20200418, end: 20200605

REACTIONS (2)
  - Eosinophilia [Not Recovered/Not Resolved]
  - Haemolytic anaemia [Not Recovered/Not Resolved]

NARRATIVE: CASE EVENT DATE: 202004
